FAERS Safety Report 6426560-7 (Version None)
Quarter: 2009Q4

REPORT INFORMATION
  Report Type: 
  Country: None (occurrence: None)
  Receive Date: 20091016
  Receipt Date: 20090403
  Transmission Date: 20100525
  Serious: Yes (Other)
  Sender: FDA-Public Use
  Company Number: A03200901462

PATIENT
  Age: 70 Year
  Sex: Female

DRUGS (3)
  1. ELOXATIN [Suspect]
     Indication: COLON CANCER STAGE III
     Dosage: INTRAVENOUS NOS
     Route: 042
  2. LEUCOVORIN - SOLUTION - UNIT DOSE : UNKNWON [Suspect]
     Indication: COLON CANCER STAGE III
     Dosage: INTRAVENOUS NOS
     Route: 042
  3. FLUOROURACIL [Suspect]
     Indication: COLON CANCER STAGE III
     Dosage: INTRAVENOUS NOS
     Route: 042

REACTIONS (5)
  - ABASIA [None]
  - DYSPHONIA [None]
  - LARYNGOSPASM [None]
  - SPEECH DISORDER [None]
  - TEMPERATURE INTOLERANCE [None]
